FAERS Safety Report 15691651 (Version 1)
Quarter: 2018Q4

REPORT INFORMATION
  Report Type: Spontaneous
  Country: JP (occurrence: JP)
  Receive Date: 20181205
  Receipt Date: 20181205
  Transmission Date: 20190205
  Serious: Yes (Other)
  Sender: FDA-Public Use
  Company Number: JP-MYLANLABS-2018M1089064

PATIENT
  Age: 70 Year
  Sex: Female
  Weight: 60 kg

DRUGS (13)
  1. NEXIUM [Concomitant]
     Active Substance: ESOMEPRAZOLE MAGNESIUM
     Indication: PRODUCT USED FOR UNKNOWN INDICATION
     Dosage: UNK
     Route: 065
     Dates: start: 20180907
  2. TRANSAMIN [Concomitant]
     Active Substance: TRANEXAMIC ACID
     Indication: CYSTITIS-LIKE SYMPTOM
     Dosage: 250 MILLIGRAM, TID
     Route: 048
     Dates: start: 20181001
  3. OLMESARTAN MEDOXOMIL. [Suspect]
     Active Substance: OLMESARTAN MEDOXOMIL
     Dosage: 10 MILLIGRAM
     Route: 048
     Dates: start: 20181016, end: 20181018
  4. ASTOMIN                            /00426502/ [Concomitant]
     Active Substance: DIMEMORFAN PHOSPHATE
     Indication: CYSTITIS-LIKE SYMPTOM
     Dosage: 10 MILLIGRAM, TID
     Route: 048
     Dates: start: 20181001
  5. NICARDIPINE [Concomitant]
     Active Substance: NICARDIPINE
     Indication: CEREBRAL HAEMORRHAGE
     Dosage: 2 UNK
     Route: 042
     Dates: start: 20181005, end: 20181007
  6. OLMESARTAN MEDOXOMIL. [Suspect]
     Active Substance: OLMESARTAN MEDOXOMIL
     Indication: CEREBRAL HAEMORRHAGE
     Dosage: 10 MILLIGRAM, QD
     Route: 048
     Dates: start: 20181007, end: 20181008
  7. URSODEOXYCHOLIC ACID [Concomitant]
     Active Substance: URSODIOL
     Indication: PRODUCT USED FOR UNKNOWN INDICATION
     Dosage: UNK
     Route: 065
     Dates: start: 20180921
  8. ASTOMIN                            /00426502/ [Concomitant]
     Active Substance: DIMEMORFAN PHOSPHATE
     Indication: OROPHARYNGEAL PAIN
  9. TRANSAMIN [Concomitant]
     Active Substance: TRANEXAMIC ACID
     Indication: OROPHARYNGEAL PAIN
  10. OLMESARTAN MEDOXOMIL. [Suspect]
     Active Substance: OLMESARTAN MEDOXOMIL
     Indication: CEREBRAL HAEMORRHAGE
     Dosage: 20 MILLIGRAM, QD
     Route: 048
     Dates: start: 20181009, end: 20181015
  11. CEFALEXIN [Concomitant]
     Active Substance: CEPHALEXIN
     Indication: OROPHARYNGEAL PAIN
  12. CEFALEXIN [Concomitant]
     Active Substance: CEPHALEXIN
     Indication: CYSTITIS-LIKE SYMPTOM
     Dosage: 250 MILLIGRAM, QID
     Route: 048
     Dates: start: 20181001
  13. GLYCEOL                            /00744501/ [Concomitant]
     Active Substance: GLYCERIN
     Indication: CEREBRAL HAEMORRHAGE
     Dosage: 200 MILLILITER, BID
     Route: 041
     Dates: start: 20181005, end: 20181011

REACTIONS (2)
  - Cystitis [Recovered/Resolved]
  - Drug-induced liver injury [Unknown]

NARRATIVE: CASE EVENT DATE: 20181015
